FAERS Safety Report 23512610 (Version 1)
Quarter: 2024Q1

REPORT INFORMATION
  Report Type: Spontaneous
  Country: US (occurrence: US)
  Receive Date: 20240212
  Receipt Date: 20240212
  Transmission Date: 20240410
  Serious: No
  Sender: FDA-Public Use
  Company Number: US-ELI_LILLY_AND_COMPANY-US202402005390

PATIENT
  Age: 43 Year
  Sex: Female

DRUGS (6)
  1. TRULICITY [Suspect]
     Active Substance: DULAGLUTIDE
     Indication: Glucose tolerance impaired
     Dosage: 4.5 MG, UNKNOWN
     Route: 058
     Dates: start: 2022
  2. TRULICITY [Suspect]
     Active Substance: DULAGLUTIDE
     Indication: Glucose tolerance impaired
     Dosage: 4.5 MG, UNKNOWN
     Route: 058
     Dates: start: 2022
  3. TRULICITY [Suspect]
     Active Substance: DULAGLUTIDE
     Indication: Glucose tolerance impaired
     Dosage: 4.5 MG, UNKNOWN
     Route: 058
     Dates: start: 2022
  4. TRULICITY [Suspect]
     Active Substance: DULAGLUTIDE
     Indication: Polycystic ovarian syndrome
     Dosage: 4.5 MG, UNKNOWN
     Route: 058
     Dates: start: 2022
  5. TRULICITY [Suspect]
     Active Substance: DULAGLUTIDE
     Indication: Polycystic ovarian syndrome
     Dosage: 4.5 MG, UNKNOWN
     Route: 058
     Dates: start: 2022
  6. TRULICITY [Suspect]
     Active Substance: DULAGLUTIDE
     Indication: Polycystic ovarian syndrome
     Dosage: 4.5 MG, UNKNOWN
     Route: 058
     Dates: start: 2022

REACTIONS (2)
  - Injection site haemorrhage [Unknown]
  - Off label use [Unknown]
